FAERS Safety Report 9219751 (Version 1)
Quarter: 2013Q1

REPORT INFORMATION
  Report Type: Spontaneous
  Country: US (occurrence: None)
  Receive Date: 20120827
  Receipt Date: 20120827
  Transmission Date: 20140127
  Serious: Yes (Hospitalization, Other)
  Sender: FDA-Public Use
  Company Number: KV201200123

PATIENT
  Age: 19 Year
  Sex: Female

DRUGS (1)
  1. MAKENA [Suspect]
     Indication: PREMATURE DELIVERY
     Route: 030
     Dates: start: 20120517, end: 20120621

REACTIONS (3)
  - Premature labour [None]
  - Premature delivery [None]
  - Off label use [None]
